FAERS Safety Report 5137733-8 (Version None)
Quarter: 2006Q4

REPORT INFORMATION
  Report Type: 
  Country: None (occurrence: None)
  Receive Date: 20061030
  Receipt Date: 20051227
  Transmission Date: 20070319
  Serious: No
  Sender: FDA-Public Use
  Company Number: US-GLAXOSMITHKLINE-A0587052A

PATIENT
  Sex: Male

DRUGS (7)
  1. ADVAIR HFA [Suspect]
     Indication: ASTHMA
     Dosage: 1BLS TWICE PER DAY
     Route: 055
  2. MAXZIDE [Concomitant]
  3. COZAAR [Concomitant]
  4. ASPIRIN [Concomitant]
  5. TYLENOL [Concomitant]
  6. CENTRUM SILVER VITAMINS [Concomitant]
  7. GLUCOSAMINE CHONDROITIN [Concomitant]

REACTIONS (4)
  - DYSPHONIA [None]
  - SINUS CONGESTION [None]
  - SINUS DISORDER [None]
  - SINUS HEADACHE [None]
